FAERS Safety Report 9842324 (Version 1)
Quarter: 2013Q4

REPORT INFORMATION
  Report Type: Spontaneous
  Country: US (occurrence: None)
  Receive Date: 20131219
  Receipt Date: 20131219
  Transmission Date: 20140711
  Serious: Yes (Death)
  Sender: FDA-Public Use
  Company Number: 163-20785-13062690

PATIENT
  Age: 63 Year
  Sex: Male

DRUGS (11)
  1. THALOMID (THAMLIDOMIDE) (50 MILLIGRAM, CAPSULES) [Suspect]
     Indication: PLASMA CELL MYELOMA
     Dosage: 1 IN 1 D
     Route: 048
     Dates: start: 20130517, end: 20130530
  2. DECADRON [Concomitant]
  3. ZYVOX [Concomitant]
  4. SERTRALINE HCL [Concomitant]
  5. ZOMETA [Concomitant]
  6. METOCLOPRAMIDE HCL [Concomitant]
  7. OMEPRAZOLE [Concomitant]
  8. ACYCLOVIR [Concomitant]
  9. MEPRON [Concomitant]
  10. LACTOBACILLUS [Concomitant]
  11. CALCIUM [Concomitant]

REACTIONS (1)
  - Death [None]
